FAERS Safety Report 12995456 (Version 1)
Quarter: 2016Q4

REPORT INFORMATION
  Report Type: Spontaneous
  Country: TR (occurrence: TR)
  Receive Date: 20161202
  Receipt Date: 20161202
  Transmission Date: 20170207
  Serious: Yes (Disabling, Other)
  Sender: FDA-Public Use
  Company Number: TR-APOPHARMA USA, INC.-2016AP015401

PATIENT
  Age: 41 Month
  Sex: Male

DRUGS (2)
  1. ALKERAN [Suspect]
     Active Substance: MELPHALAN
     Indication: RETINOBLASTOMA
     Dosage: 7.5 MG, SINGLE
     Route: 013
  2. HEPARIN [Concomitant]
     Active Substance: HEPARIN SODIUM
     Indication: ACTIVATED PARTIAL THROMBOPLASTIN TIME PROLONGED
     Dosage: 75 IU/KG, SINGLE
     Route: 042

REACTIONS (2)
  - Retinal detachment [Recovered/Resolved]
  - Vitreous haemorrhage [Recovered/Resolved]
